FAERS Safety Report 7186070-9 (Version None)
Quarter: 2010Q4

REPORT INFORMATION
  Report Type: 
  Country: None (occurrence: None)
  Receive Date: 20101222
  Receipt Date: 20101216
  Transmission Date: 20110411
  Serious: Yes (Hospitalization)
  Sender: FDA-Public Use
  Company Number: PHHY2010US85669

PATIENT
  Age: 61 Year
  Sex: Male

DRUGS (4)
  1. METOPROLOL (NGX) [Suspect]
     Indication: HYPERTENSION
     Dosage: 2X5
     Route: 048
     Dates: start: 20030101, end: 20100101
  2. GLUCOPHAGE [Concomitant]
  3. ACTOS [Concomitant]
  4. ASPIRIN [Concomitant]

REACTIONS (2)
  - EATING DISORDER [None]
  - LOSS OF CONSCIOUSNESS [None]
